FAERS Safety Report 22396586 (Version 1)
Quarter: 2023Q2

REPORT INFORMATION
  Report Type: Spontaneous
  Country: US (occurrence: US)
  Receive Date: 20230601
  Receipt Date: 20230601
  Transmission Date: 20230722
  Serious: No
  Sender: FDA-Public Use
  Company Number: US-APIL-2313431US

PATIENT
  Sex: Female

DRUGS (1)
  1. LATISSE [Suspect]
     Active Substance: BIMATOPROST
     Indication: Growth of eyelashes
     Dosage: 1 DROP PER APPLICATOR PER EYE DAILY
     Dates: start: 202207

REACTIONS (3)
  - Drug ineffective [Unknown]
  - Madarosis [Unknown]
  - Eye irritation [Unknown]
